FAERS Safety Report 10219476 (Version 1)
Quarter: 2014Q2

REPORT INFORMATION
  Report Type: Spontaneous
  Country: JP (occurrence: None)
  Receive Date: 20140603
  Receipt Date: 20140603
  Transmission Date: 20141212
  Serious: Yes (Other)
  Sender: FDA-Public Use
  Company Number: SYM-2014-21468

PATIENT
  Sex: Male

DRUGS (2)
  1. TIMOLOL MALEATE (EYE DROPS, SOLUTION) (TIMOLOL MALEATE) [Suspect]
     Indication: GLAUCOMA
     Dosage: FORMULATION: EED, OPTHALMIC
     Route: 047
  2. DORZOLAMIDE HYDROCHLORIDE (EYE DROPS, SOLUTION) (DORZOLAMIDE HYDROCHLORIDE) [Suspect]
     Dosage: FORMULATION: EED, OPHTHALMIC
     Route: 047

REACTIONS (1)
  - Bronchostenosis [None]
